FAERS Safety Report 5569534-0 (Version None)
Quarter: 2007Q4

REPORT INFORMATION
  Report Type: 
  Country: None (occurrence: None)
  Receive Date: 20071220
  Receipt Date: 20071026
  Transmission Date: 20080405
  Serious: Yes (Death, Other)
  Sender: FDA-Public Use
  Company Number: US-PURDUE-USA_2007_0030231

PATIENT
  Age: 37 Year
  Sex: Male
  Weight: 70 kg

DRUGS (3)
  1. METHADONE HCL [Suspect]
     Indication: DRUG ABUSE
  2. MORPHINE SULFATE [Suspect]
     Indication: DRUG ABUSE
  3. OXYCONTIN [Suspect]
     Indication: BACK PAIN
     Dates: start: 20000524, end: 20001214

REACTIONS (4)
  - DRUG DEPENDENCE [None]
  - IMPAIRED WORK ABILITY [None]
  - MULTIPLE DRUG OVERDOSE ACCIDENTAL [None]
  - SUBSTANCE ABUSE [None]
